FAERS Safety Report 9071667 (Version 1)
Quarter: 2013Q1

REPORT INFORMATION
  Report Type: Spontaneous
  Country: US (occurrence: US)
  Receive Date: 20130206
  Receipt Date: 20130206
  Transmission Date: 20140127
  Serious: No
  Sender: FDA-Public Use
  Company Number: US-ALLERGAN-1213342US

PATIENT
  Sex: Female

DRUGS (5)
  1. RESTASIS? [Suspect]
     Indication: DRY EYE
     Dosage: UNK UNK, BID
     Route: 047
     Dates: start: 201208
  2. ATENOLOL [Concomitant]
     Indication: MIGRAINE
     Dosage: 25 MG, QD
     Route: 048
  3. PRISTIQ [Concomitant]
     Indication: MIGRAINE
     Dosage: 50 MG, QD
     Route: 048
  4. PRISTIQ [Concomitant]
     Indication: ANXIETY
  5. RENEW EYE DROPS [Concomitant]
     Indication: DRY EYE
     Dosage: UNK, PRN
     Route: 047

REACTIONS (5)
  - Incorrect storage of drug [Unknown]
  - Incorrect dose administered [Unknown]
  - Asthenopia [Not Recovered/Not Resolved]
  - Eye irritation [Not Recovered/Not Resolved]
  - Eye pain [Not Recovered/Not Resolved]
